FAERS Safety Report 7943703-4 (Version None)
Quarter: 2011Q4

REPORT INFORMATION
  Report Type: 
  Country: None (occurrence: None)
  Receive Date: 20111128
  Receipt Date: 20111123
  Transmission Date: 20120403
  Serious: Yes (Death, Other)
  Sender: FDA-Public Use
  Company Number: SY-ABBOTT-11P-152-0876896-00

PATIENT
  Age: 65 Year
  Sex: Male
  Weight: 110 kg

DRUGS (2)
  1. HUMIRA [Suspect]
     Dosage: ONE INJECTION
     Dates: start: 20110619, end: 20110619
  2. HUMIRA [Suspect]
     Indication: PSORIASIS
     Dosage: TWO INJECTIONS
     Dates: start: 20110612, end: 20110612

REACTIONS (2)
  - INFECTION [None]
  - MALAISE [None]
